FAERS Safety Report 8561953-3 (Version None)
Quarter: 2012Q3

REPORT INFORMATION
  Report Type: 
  Country: None (occurrence: None)
  Receive Date: 20120802
  Receipt Date: 20120719
  Transmission Date: 20120928
  Serious: No
  Sender: FDA-Public Use
  Company Number: US-ASTRAZENECA-2012SE51304

PATIENT
  Age: 60 Year
  Sex: Male

DRUGS (2)
  1. NITROGLYCERIN [Concomitant]
  2. ATACAND [Suspect]
     Route: 048

REACTIONS (5)
  - HEPATITIS C [None]
  - MEMORY IMPAIRMENT [None]
  - ANXIETY [None]
  - CARDIAC DISORDER [None]
  - ARTHROPATHY [None]
